FAERS Safety Report 13945409 (Version 1)
Quarter: 2017Q3

REPORT INFORMATION
  Report Type: Spontaneous
  Country: US (occurrence: US)
  Receive Date: 20170907
  Receipt Date: 20170907
  Transmission Date: 20171128
  Serious: Yes (Other)
  Sender: FDA-Public Use
  Company Number: US-VALIDUS PHARMACEUTICALS LLC-US-2017VAL001318

PATIENT
  Sex: Female

DRUGS (7)
  1. ZOLOFT [Suspect]
     Active Substance: SERTRALINE HYDROCHLORIDE
     Indication: PRODUCT USED FOR UNKNOWN INDICATION
     Dosage: 50 MG, QD
     Route: 065
  2. TOLTERODINE TARTRATE. [Suspect]
     Active Substance: TOLTERODINE TARTRATE
     Indication: PRODUCT USED FOR UNKNOWN INDICATION
     Dosage: 4 MG, QD
     Route: 065
  3. LASIX [Suspect]
     Active Substance: FUROSEMIDE
     Indication: PRODUCT USED FOR UNKNOWN INDICATION
     Dosage: 40 MG, QD
     Route: 065
  4. METHOTREXATE (METHOTREXATE SODIUM) [Suspect]
     Active Substance: METHOTREXATE SODIUM
     Indication: PRODUCT USED FOR UNKNOWN INDICATION
     Dosage: UNK
     Route: 065
  5. ENBREL [Suspect]
     Active Substance: ETANERCEPT
     Indication: PRODUCT USED FOR UNKNOWN INDICATION
     Dosage: UNK
     Route: 065
  6. MORPHINE [Suspect]
     Active Substance: MORPHINE
     Indication: PRODUCT USED FOR UNKNOWN INDICATION
     Dosage: UNK
     Route: 065
  7. SULFASALAZINE. [Suspect]
     Active Substance: SULFASALAZINE
     Indication: PRODUCT USED FOR UNKNOWN INDICATION
     Dosage: UNK
     Route: 065

REACTIONS (27)
  - Anosmia [Unknown]
  - Joint stiffness [Unknown]
  - Joint swelling [Unknown]
  - Sinusitis [Unknown]
  - Asthenia [Unknown]
  - Feeling cold [Unknown]
  - Peripheral coldness [Unknown]
  - Foot deformity [Unknown]
  - Paraesthesia [Unknown]
  - Hypoaesthesia [Unknown]
  - Arthralgia [Unknown]
  - Haemorrhagic diathesis [Unknown]
  - Hallucination [Unknown]
  - Dry eye [Unknown]
  - Ocular hyperaemia [Unknown]
  - Sleep disorder [Unknown]
  - Dry mouth [Unknown]
  - Dysphagia [Unknown]
  - Peripheral swelling [Unknown]
  - Increased tendency to bruise [Unknown]
  - Visual impairment [Unknown]
  - Dysphonia [Unknown]
  - Impaired healing [Unknown]
  - Myalgia [Unknown]
  - Drug hypersensitivity [Unknown]
  - Fatigue [Unknown]
  - Vomiting [Unknown]
